FAERS Safety Report 20310357 (Version 1)
Quarter: 2022Q1

REPORT INFORMATION
  Report Type: Report from Study
  Country: CO (occurrence: CO)
  Receive Date: 20220107
  Receipt Date: 20220107
  Transmission Date: 20220423
  Serious: Yes (Hospitalization)
  Sender: FDA-Public Use
  Company Number: CO-BRISTOL-MYERS SQUIBB COMPANY-BMS-2022-001857

PATIENT
  Age: 79 Year
  Sex: Female

DRUGS (1)
  1. NIVOLUMAB [Suspect]
     Active Substance: NIVOLUMAB
     Indication: Malignant melanoma
     Dosage: 240 MILLIGRAM, EVERY 15 DAYS
     Route: 042
     Dates: start: 20211004

REACTIONS (5)
  - Mobility decreased [Recovered/Resolved]
  - General physical health deterioration [Unknown]
  - Productive cough [Recovered/Resolved]
  - Vomiting [Unknown]
  - Feeding intolerance [Unknown]

NARRATIVE: CASE EVENT DATE: 20211230
